FAERS Safety Report 8159332-6 (Version None)
Quarter: 2012Q1

REPORT INFORMATION
  Report Type: 
  Country: None (occurrence: None)
  Receive Date: 20120217
  Receipt Date: 20120209
  Transmission Date: 20120608
  Serious: Yes (Hospitalization)
  Sender: FDA-Public Use
  Company Number: 1000028166

PATIENT
  Age: 23 Year
  Sex: Male

DRUGS (2)
  1. CITALOPRAM HYDROBROMIDE [Suspect]
     Dosage: 10 DAYS RUN-IN PERIOD (40 MG)
  2. LECOZOTAN (SEROTONIN ANTAGONISTS) [Suspect]
     Dosage: 10 MG

REACTIONS (4)
  - HYPERHIDROSIS [None]
  - HYPERREFLEXIA [None]
  - TOXICITY TO VARIOUS AGENTS [None]
  - TREMOR [None]
